FAERS Safety Report 8558680-5 (Version None)
Quarter: 2012Q3

REPORT INFORMATION
  Report Type: 
  Country: None (occurrence: None)
  Receive Date: 20120801
  Receipt Date: 20120724
  Transmission Date: 20120928
  Serious: Yes (Hospitalization)
  Sender: FDA-Public Use
  Company Number: US-JNJFOC-20110808910

PATIENT
  Sex: Male
  Weight: 48.9 kg

DRUGS (4)
  1. GROWTH HORMONE [Concomitant]
  2. REMICADE [Suspect]
     Indication: INFLAMMATORY BOWEL DISEASE
     Route: 042
     Dates: start: 20101220
  3. METHOTREXATE [Concomitant]
  4. REMICADE [Suspect]
     Route: 042
     Dates: start: 20070701

REACTIONS (1)
  - ANAL FISTULA [None]
